FAERS Safety Report 10386709 (Version 1)
Quarter: 2014Q3

REPORT INFORMATION
  Report Type: Spontaneous
  Country: US (occurrence: None)
  Receive Date: 20140814
  Receipt Date: 20140814
  Transmission Date: 20150326
  Serious: Yes (Hospitalization)
  Sender: FDA-Public Use
  Company Number: None

PATIENT
  Age: 46 Year
  Sex: Female
  Weight: 85 kg

DRUGS (4)
  1. DIETARY SUPPLEMENT [Suspect]
     Active Substance: DIETARY SUPPLEMENT
     Indication: WEIGHT CONTROL
     Dosage: 2 PILLS WITH MEALS
     Dates: start: 20140504, end: 20140704
  2. IBUPROFEN. [Suspect]
     Active Substance: IBUPROFEN
  3. DIETARY SUPPLEMENT [Suspect]
     Active Substance: DIETARY SUPPLEMENT
     Indication: ASTHENIA
     Dosage: 2 PILLS WITH MEALS
     Dates: start: 20140504, end: 20140704
  4. DMAA [Suspect]
     Active Substance: METHYLHEXANEAMINE

REACTIONS (4)
  - Dizziness [None]
  - Headache [None]
  - Vomiting [None]
  - Nausea [None]

NARRATIVE: CASE EVENT DATE: 20140704
